FAERS Safety Report 8878151 (Version 1)
Quarter: 2012Q4

REPORT INFORMATION
  Report Type: Spontaneous
  Country: IT (occurrence: None)
  Receive Date: 20121026
  Receipt Date: 20121026
  Transmission Date: 20130627
  Serious: Yes (Hospitalization)
  Sender: FDA-Public Use
  Company Number: FK201203166

PATIENT
  Age: 79 Year
  Sex: Female
  Weight: 69 kg

DRUGS (2)
  1. CEFTRIAXONE [Suspect]
     Indication: URINARY TRACT INFECTION
     Route: 030
     Dates: start: 20120630, end: 20120706
  2. IBUPROFEN [Suspect]
     Indication: URINARY TRACT INFECTION

REACTIONS (5)
  - Decreased appetite [None]
  - Nausea [None]
  - Vomiting [None]
  - Hepatitis cholestatic [None]
  - Overdose [None]
